FAERS Safety Report 8365284-6 (Version None)
Quarter: 2012Q2

REPORT INFORMATION
  Report Type: 
  Country: None (occurrence: None)
  Receive Date: 20120516
  Receipt Date: 20120508
  Transmission Date: 20120825
  Serious: Yes (Hospitalization, Other)
  Sender: FDA-Public Use
  Company Number: DE-PFIZER INC-2012113191

PATIENT
  Age: 53 Year
  Sex: Female

DRUGS (8)
  1. CLEMASTINE [Concomitant]
     Indication: PREMEDICATION
     Dosage: 1 HOUR BEFORE PACLITAXEL
     Route: 042
  2. DEXAMETHASONE [Concomitant]
     Indication: PREMEDICATION
     Dosage: 20 MG, 14 HOURS PRIOR TO PACLITAXEL
     Route: 048
  3. DEXAMETHASONE [Concomitant]
     Dosage: 20 MG, 1HOURS PRIOR TO PACLITAXEL
     Route: 048
  4. ONDANSETRON [Concomitant]
     Indication: PREMEDICATION
     Dosage: 8 MG, 30 MINUTES PRIOR TO PACLITAXEL
  5. DIAZEPAM [Concomitant]
     Indication: ANXIETY
     Dosage: UNK
  6. RANITIDINE [Concomitant]
     Indication: PREMEDICATION
     Dosage: 300 MG, 1 HOUR
     Route: 042
  7. PACLITAXEL [Suspect]
     Indication: BREAST CANCER METASTATIC
     Dosage: 220 MG (135MG/M2)
  8. HALOPERIDOL [Concomitant]
     Indication: ANXIETY
     Dosage: UNK

REACTIONS (2)
  - ENCEPHALOPATHY [None]
  - PANCYTOPENIA [None]
